FAERS Safety Report 18521945 (Version 2)
Quarter: 2020Q4

REPORT INFORMATION
  Report Type: Spontaneous
  Country: US (occurrence: US)
  Receive Date: 20201119
  Receipt Date: 20201223
  Transmission Date: 20210114
  Serious: Yes (Death, Other)
  Sender: FDA-Public Use
  Company Number: US-TEVA-2020-US-1850336

PATIENT
  Sex: Female

DRUGS (12)
  1. VALSARTAN/HYDROCHLOROTHIAZIDE TEVA [Suspect]
     Active Substance: HYDROCHLOROTHIAZIDE\VALSARTAN
     Dosage: DOSAGE: 160 MG
     Route: 065
     Dates: start: 20130103, end: 20130306
  2. VALSARTAN W/HYDROCHLOROTHIAZIDE AUROBINDO [Suspect]
     Active Substance: HYDROCHLOROTHIAZIDE\VALSARTAN
     Dosage: DOSAGE: 160 MG
     Route: 065
     Dates: start: 20161215, end: 20171207
  3. VALSARTAN W/HYDROCHLOROTHIAZIDE SANDOZ [Suspect]
     Active Substance: HYDROCHLOROTHIAZIDE\VALSARTAN
     Indication: HYPERTENSION
     Dosage: DOSAGE: 160 MG
     Route: 065
     Dates: start: 20140226, end: 20140328
  4. VALSARTAN W/HYDROCHLOROTHIAZIDE AUROBINDO [Suspect]
     Active Substance: HYDROCHLOROTHIAZIDE\VALSARTAN
     Dosage: DOSAGE: 160 MG
     Route: 065
     Dates: start: 20160604, end: 20161209
  5. VALSARTAN/HYDROCHLOROTHIAZIDE TEVA [Suspect]
     Active Substance: HYDROCHLOROTHIAZIDE\VALSARTAN
     Dosage: DOSAGE: 160 MG
     Route: 065
     Dates: start: 20140401, end: 20140630
  6. VALSARTAN W/HYDROCHLOROTHIAZIDE AUROBINDO [Suspect]
     Active Substance: HYDROCHLOROTHIAZIDE\VALSARTAN
     Indication: HYPERTENSION
     Dosage: DOSAGE: 160 MG
     Route: 065
     Dates: start: 20150330, end: 20151216
  7. VALSARTAN W/HYDROCHLOROTHIAZIDE LUPIN [Suspect]
     Active Substance: HYDROCHLOROTHIAZIDE\VALSARTAN
     Indication: HYPERTENSION
     Dosage: DOSAGE: 160 MG
     Route: 065
     Dates: start: 20160620, end: 20160720
  8. VALSARTAN/HYDROCHLOROTHIAZIDE TEVA [Suspect]
     Active Substance: HYDROCHLOROTHIAZIDE\VALSARTAN
     Indication: HYPERTENSION
     Dosage: DOSAGE: 160 MG
     Route: 065
     Dates: start: 20121022, end: 20121121
  9. VALSARTAN/HYDROCHLOROTHIAZIDE TEVA [Suspect]
     Active Substance: HYDROCHLOROTHIAZIDE\VALSARTAN
     Dosage: DOSAGE: 160 MG
     Route: 065
     Dates: start: 20130225, end: 20130825
  10. VALSARTAN/HYDROCHLOROTHIAZIDE TEVA [Suspect]
     Active Substance: HYDROCHLOROTHIAZIDE\VALSARTAN
     Dosage: DOSAGE: 160 MG
     Route: 065
     Dates: start: 20140929, end: 20150316
  11. VALSARTAN W/HYDROCHLOROTHIAZIDE AUROBINDO [Suspect]
     Active Substance: HYDROCHLOROTHIAZIDE\VALSARTAN
     Dosage: DOSAGE: 160 MG
     Route: 065
     Dates: start: 20151214, end: 20160312
  12. VALSARTAN W/HYDROCHLOROTHIAZIDE AUROBINDO [Suspect]
     Active Substance: HYDROCHLOROTHIAZIDE\VALSARTAN
     Dosage: DOSAGE: 160 MG
     Route: 065
     Dates: start: 20160310, end: 20160614

REACTIONS (1)
  - Pancreatic carcinoma [Fatal]
